FAERS Safety Report 16822059 (Version 2)
Quarter: 2019Q4

REPORT INFORMATION
  Report Type: Spontaneous
  Country: VN (occurrence: VN)
  Receive Date: 20190918
  Receipt Date: 20191220
  Transmission Date: 20200122
  Serious: Yes (Hospitalization, Other)
  Sender: FDA-Public Use
  Company Number: VN-ASTELLAS-2019US036605

PATIENT
  Age: 45 Year
  Sex: Male

DRUGS (3)
  1. CELLCEPT [Concomitant]
     Active Substance: MYCOPHENOLATE MOFETIL\MYCOPHENOLATE MOFETIL HYDROCHLORIDE
     Indication: PRODUCT USED FOR UNKNOWN INDICATION
     Dosage: 1.5G/DATE DIVIDE INTO 2 TIMES
     Route: 065
  2. TACROLIMUS. [Suspect]
     Active Substance: TACROLIMUS
     Indication: PROPHYLAXIS AGAINST TRANSPLANT REJECTION
     Dosage: 6MG/DAY, DIVIDED 2 TIMES
     Route: 048
     Dates: start: 20190522
  3. PREDNISOLON                        /00016201/ [Concomitant]
     Active Substance: PREDNISOLONE
     Indication: PRODUCT USED FOR UNKNOWN INDICATION
     Route: 065

REACTIONS (4)
  - Complications of transplant surgery [Recovered/Resolved]
  - Ureteric stenosis [Recovered/Resolved]
  - Post procedural urine leak [Recovered/Resolved]
  - Lymphatic fistula [Recovered/Resolved]
